FAERS Safety Report 7360717-6 (Version None)
Quarter: 2011Q1

REPORT INFORMATION
  Report Type: 
  Country: None (occurrence: None)
  Receive Date: 20110318
  Receipt Date: 20110309
  Transmission Date: 20110831
  Serious: Yes (Life-Threatening, Hospitalization, Disabling)
  Sender: FDA-Public Use
  Company Number: DE-SANOFI-AVENTIS-2010SA065115

PATIENT
  Age: 69 Year
  Sex: Female
  Weight: 82 kg

DRUGS (11)
  1. FORMOTEROL FUMARATE [Concomitant]
     Dosage: DOSAGE: 1-0-1 HUB
     Route: 055
  2. MULTAQ [Suspect]
     Indication: ATRIAL FIBRILLATION
     Route: 048
     Dates: start: 20100517, end: 20101003
  3. LEVOTHYROXINE SODIUM [Concomitant]
     Indication: HYPOTHYROIDISM
     Route: 048
  4. SIMVASTATIN [Concomitant]
     Dosage: DOSAGE: 0-0-1/2
     Route: 048
  5. HYDROCHLOROTHIAZIDE [Concomitant]
     Route: 048
  6. AMLODIPINE [Concomitant]
     Route: 048
  7. BISOPROLOL [Concomitant]
     Dosage: DOSAGE: 1/2-0-1/2
     Route: 048
  8. SPIRIVA [Concomitant]
     Dosage: DOSAGE: 1-0-0 HUB
     Route: 055
  9. LISIHEXAL [Concomitant]
     Dosage: DOSAGE: 1/2-0-1/2
     Route: 048
  10. ASPIRIN [Concomitant]
     Route: 048
  11. ALENDRONIC ACID [Concomitant]
     Indication: OSTEOPOROSIS
     Route: 065

REACTIONS (7)
  - ASTHENIA [None]
  - HEPATOCELLULAR INJURY [None]
  - ACUTE HEPATIC FAILURE [None]
  - ABDOMINAL PAIN [None]
  - HEPATIC ENCEPHALOPATHY [None]
  - JAUNDICE [None]
  - CHROMATURIA [None]
